FAERS Safety Report 24975100 (Version 1)
Quarter: 2025Q1

REPORT INFORMATION
  Report Type: Spontaneous
  Country: US (occurrence: US)
  Receive Date: 20250217
  Receipt Date: 20250217
  Transmission Date: 20250409
  Serious: No
  Sender: ELI LILLY AND COMPANY
  Company Number: US-ELI_LILLY_AND_COMPANY-US202502011093

PATIENT
  Age: 43 Year
  Sex: Male

DRUGS (2)
  1. HUMULIN 70/30 [Suspect]
     Active Substance: INSULIN HUMAN
     Indication: Diabetes mellitus
     Route: 065
     Dates: start: 2023
  2. HUMULIN 70/30 [Suspect]
     Active Substance: INSULIN HUMAN
     Route: 065
     Dates: start: 2023

REACTIONS (1)
  - Visual impairment [Unknown]
